FAERS Safety Report 7672338-6 (Version None)
Quarter: 2011Q3

REPORT INFORMATION
  Report Type: 
  Country: None (occurrence: None)
  Receive Date: 20110804
  Receipt Date: 20110722
  Transmission Date: 20111222
  Serious: Yes (Hospitalization)
  Sender: FDA-Public Use
  Company Number: 1000019320

PATIENT
  Age: 78 Year
  Sex: Female

DRUGS (7)
  1. PREVISCAN (FLUINDIONE) [Suspect]
  2. ARICEPT [Concomitant]
  3. DIGOXIN [Concomitant]
  4. TAREG (VALSARTAN) [Concomitant]
  5. LERCANIDIPINE [Concomitant]
  6. METFORMIN (METFORMIN HYDROCHLORIDE) [Concomitant]
  7. MEMANTINE HYDROCHLORIDE [Suspect]
     Indication: DEMENTIA ALZHEIMER'S TYPE
     Dates: start: 20101201

REACTIONS (6)
  - BACK PAIN [None]
  - URINARY INCONTINENCE [None]
  - SPINAL EPIDURAL HAEMORRHAGE [None]
  - DRUG INTERACTION [None]
  - PARAPLEGIA [None]
  - PARALYSIS FLACCID [None]
